FAERS Safety Report 7445744-2 (Version None)
Quarter: 2011Q2

REPORT INFORMATION
  Report Type: 
  Country: None (occurrence: None)
  Receive Date: 20110429
  Receipt Date: 20100422
  Transmission Date: 20111010
  Serious: No
  Sender: FDA-Public Use
  Company Number: US-ASTRAZENECA-2010SE18312

PATIENT
  Age: 720 Month
  Sex: Male
  Weight: 79.4 kg

DRUGS (5)
  1. VYTORIN [Concomitant]
  2. PLAVIX [Concomitant]
  3. ATENOLOL [Concomitant]
  4. ASPIRIN [Concomitant]
  5. NEXIUM [Suspect]
     Indication: GASTROOESOPHAGEAL REFLUX DISEASE
     Route: 048
     Dates: start: 20100101, end: 20100401

REACTIONS (4)
  - DYSPEPSIA [None]
  - ABDOMINAL DISCOMFORT [None]
  - FATIGUE [None]
  - DRUG DOSE OMISSION [None]
